FAERS Safety Report 6929829-2 (Version None)
Quarter: 2010Q3

REPORT INFORMATION
  Report Type: 
  Country: None (occurrence: None)
  Receive Date: 20100817
  Receipt Date: 20100817
  Transmission Date: 20110219
  Serious: Yes (Death)
  Sender: FDA-Public Use
  Company Number: None

PATIENT
  Sex: Female
  Weight: 88.4514 kg

DRUGS (4)
  1. METFORMIN HCL [Suspect]
     Indication: GLYCOSYLATED HAEMOGLOBIN INCREASED
     Dosage: 500MG DAILY ORAL 1,000MG DAILY ORAL
     Route: 048
     Dates: start: 20080522, end: 20080605
  2. METFORMIN HCL [Suspect]
     Indication: TYPE 2 DIABETES MELLITUS
     Dosage: 500MG DAILY ORAL 1,000MG DAILY ORAL
     Route: 048
     Dates: start: 20080522, end: 20080605
  3. METFORMIN HCL [Suspect]
     Indication: GLYCOSYLATED HAEMOGLOBIN INCREASED
     Dosage: 500MG DAILY ORAL 1,000MG DAILY ORAL
     Route: 048
     Dates: start: 20080606, end: 20080815
  4. METFORMIN HCL [Suspect]
     Indication: TYPE 2 DIABETES MELLITUS
     Dosage: 500MG DAILY ORAL 1,000MG DAILY ORAL
     Route: 048
     Dates: start: 20080606, end: 20080815

REACTIONS (1)
  - ABDOMINAL PAIN [None]
